FAERS Safety Report 14019421 (Version 1)
Quarter: 2017Q3

REPORT INFORMATION
  Report Type: Spontaneous
  Country: US (occurrence: US)
  Receive Date: 20170928
  Receipt Date: 20170928
  Transmission Date: 20171128
  Serious: Yes (Other)
  Sender: FDA-Public Use
  Company Number: US-APOTEX-2017AP018808

PATIENT
  Age: 27 Year
  Sex: Female

DRUGS (7)
  1. RITUXIMAB. [Suspect]
     Active Substance: RITUXIMAB
     Indication: ERYTHEMA MULTIFORME
     Route: 065
  2. VALACYCLOVIR TABLETS USP [Suspect]
     Active Substance: VALACYCLOVIR HYDROCHLORIDE
     Indication: ERYTHEMA MULTIFORME
     Route: 065
  3. ETANERCEPT [Suspect]
     Active Substance: ETANERCEPT
     Indication: ERYTHEMA MULTIFORME
     Dosage: 50 MG, B.I.WK.
     Route: 058
  4. PREDNISONE. [Suspect]
     Active Substance: PREDNISONE
     Indication: ERYTHEMA MULTIFORME
     Route: 065
  5. IMMUNOGLOBULIN                     /00025201/ [Suspect]
     Active Substance: HUMAN IMMUNOGLOBULIN G
     Indication: ERYTHEMA MULTIFORME
     Route: 042
  6. THALIDOMIDE [Suspect]
     Active Substance: THALIDOMIDE
     Indication: ERYTHEMA MULTIFORME
     Dosage: 50 MG, Q.H.S.
     Route: 048
  7. FAMCICLOVIR. [Suspect]
     Active Substance: FAMCICLOVIR
     Indication: ERYTHEMA MULTIFORME
     Dosage: 500 MG, TID
     Route: 048

REACTIONS (4)
  - Disease recurrence [None]
  - Therapeutic response decreased [Unknown]
  - Treatment failure [Unknown]
  - Skin lesion [None]
